FAERS Safety Report 18320488 (Version 1)
Quarter: 2020Q3

REPORT INFORMATION
  Report Type: Spontaneous
  Country: PT (occurrence: PT)
  Receive Date: 20200928
  Receipt Date: 20200928
  Transmission Date: 20201103
  Serious: Yes (Hospitalization)
  Sender: FDA-Public Use
  Company Number: PT-OXFORD PHARMACEUTICALS, LLC-2020OXF00118

PATIENT
  Age: 27 Year
  Sex: Female

DRUGS (6)
  1. TRAZODONE [Suspect]
     Active Substance: TRAZODONE HYDROCHLORIDE
     Indication: INSOMNIA
     Dosage: 100 MG
     Route: 065
     Dates: start: 201605
  2. ALPRAZOLAM. [Concomitant]
     Active Substance: ALPRAZOLAM
     Dosage: 0.5 MG; OVER 2 WEEKS
     Dates: start: 201605
  3. TRAZODONE [Suspect]
     Active Substance: TRAZODONE HYDROCHLORIDE
     Dosage: 50 MG; ^EXTENDED RELEASE^
     Dates: start: 202008
  4. BUSPIRONE [Concomitant]
     Active Substance: BUSPIRONE HYDROCHLORIDE
     Indication: INSOMNIA
     Dosage: 10 MG
     Route: 065
  5. TRIAZOLAM. [Concomitant]
     Active Substance: TRIAZOLAM
     Dosage: 0.25 MG
     Route: 065
  6. ALPRAZOLAM. [Concomitant]
     Active Substance: ALPRAZOLAM
     Dosage: 1 MG
     Route: 065

REACTIONS (1)
  - Delirium [Recovered/Resolved]
